FAERS Safety Report 9028503 (Version 3)
Quarter: 2013Q1

REPORT INFORMATION
  Report Type: Spontaneous
  Country: CA (occurrence: CA)
  Receive Date: 20130124
  Receipt Date: 20130311
  Transmission Date: 20140127
  Serious: Yes (Hospitalization, Other)
  Sender: FDA-Public Use
  Company Number: PHHY2012CA002471

PATIENT
  Age: 82 Year
  Sex: Female

DRUGS (13)
  1. ACLASTA [Suspect]
     Indication: OSTEOPOROSIS
     Dosage: UNK
     Route: 042
     Dates: start: 20110328
  2. ACLASTA [Suspect]
     Dosage: UNK
     Route: 042
     Dates: start: 20120305
  3. NORTRIPTYLINE [Concomitant]
     Dosage: 500 MG, UNK
  4. PANTOLOC//PANTOPRAZOLE SODIUM SESQUIHYDRATE [Concomitant]
     Dosage: 40 MG, UNK
  5. RAMIPRIL [Concomitant]
     Dosage: UNK UKN, UNK
  6. PREDNISONE [Concomitant]
     Dosage: 12.5 MG, UNK
  7. ACETAMINOPHEN [Concomitant]
     Dosage: 650 MG, UNK
  8. CITALOPRAM [Concomitant]
     Dosage: 40 MG, UNK
  9. PEGALAX [Concomitant]
  10. GRAVOL [Concomitant]
     Dosage: 25 MG, UNK
  11. HYDROMORPHONE [Concomitant]
  12. WARFARIN [Concomitant]
     Dosage: 0.25 MG, UNK
  13. METOPROLOL [Concomitant]
     Dosage: 37 MG, UNK

REACTIONS (7)
  - Pneumonia [Unknown]
  - Fall [Unknown]
  - Rib fracture [Unknown]
  - Spinal compression fracture [Unknown]
  - Blood sodium decreased [Unknown]
  - Blood chloride decreased [Unknown]
  - Fluid intake reduced [Unknown]
